FAERS Safety Report 14450882 (Version 2)
Quarter: 2018Q1

REPORT INFORMATION
  Report Type: Spontaneous
  Country: US (occurrence: US)
  Receive Date: 20180129
  Receipt Date: 20180301
  Transmission Date: 20180509
  Serious: No
  Sender: FDA-Public Use
  Company Number: US-PFIZER INC-2018032986

PATIENT
  Age: 58 Year
  Sex: Female

DRUGS (1)
  1. LYRICA [Suspect]
     Active Substance: PREGABALIN
     Dosage: 450 MG, DAILY

REACTIONS (8)
  - Peripheral swelling [Unknown]
  - Pain [Unknown]
  - Drug dose omission [Unknown]
  - Drug effect incomplete [Unknown]
  - Swelling [Unknown]
  - Insomnia [Unknown]
  - Paraesthesia [Unknown]
  - Drug withdrawal syndrome [Unknown]
